FAERS Safety Report 25837673 (Version 1)
Quarter: 2025Q3

REPORT INFORMATION
  Report Type: Spontaneous
  Country: US (occurrence: None)
  Receive Date: 20250923
  Receipt Date: 20250923
  Transmission Date: 20251021
  Serious: Yes (Disabling)
  Sender: FDA-CTU
  Company Number: None

PATIENT
  Age: 17 Year
  Sex: Male
  Weight: 51.1 kg

DRUGS (4)
  1. SULFASALAZINE [Suspect]
     Active Substance: SULFASALAZINE
     Indication: Colitis ulcerative
     Dates: start: 20250623, end: 20250708
  2. AMOXICILLIN [Concomitant]
     Active Substance: AMOXICILLIN
  3. CYCLOSPORINE [Concomitant]
     Active Substance: CYCLOSPORINE
  4. ETANERCEPT [Concomitant]
     Active Substance: ETANERCEPT

REACTIONS (12)
  - Swelling of eyelid [None]
  - Lip swelling [None]
  - Oropharyngeal pain [None]
  - Pyrexia [None]
  - Peripheral swelling [None]
  - Streptococcus test positive [None]
  - Stevens-Johnson syndrome [None]
  - Toxic epidermal necrolysis [None]
  - Dysphagia [None]
  - Pseudomonal bacteraemia [None]
  - Hepatic enzyme increased [None]
  - Thrombosis [None]

NARRATIVE: CASE EVENT DATE: 20250709
